FAERS Safety Report 4696635-1 (Version None)
Quarter: 2005Q2

REPORT INFORMATION
  Report Type: 
  Country: None (occurrence: None)
  Receive Date: 20050616
  Receipt Date: 20050329
  Transmission Date: 20051028
  Serious: No
  Sender: FDA-Public Use
  Company Number: BDI-007061

PATIENT
  Age: 61 Year
  Sex: Female
  Weight: 108.8 kg

DRUGS (6)
  1. MULTIHANCE [Suspect]
     Indication: NEPHRECTOMY
     Dosage: 25 ML ONCE IV
     Route: 042
     Dates: start: 20050316, end: 20050316
  2. MULTIHANCE [Suspect]
     Indication: NUCLEAR MAGNETIC RESONANCE IMAGING
     Dosage: 25 ML ONCE IV
     Route: 042
     Dates: start: 20050316, end: 20050316
  3. VERAPAMIL [Concomitant]
  4. LASIX [Concomitant]
  5. POTASSIUM CHLORIDE [Concomitant]
  6. ASPIRIN [Concomitant]

REACTIONS (1)
  - NAUSEA [None]
